FAERS Safety Report 15295698 (Version 2)
Quarter: 2018Q4

REPORT INFORMATION
  Report Type: Report from Study
  Country: DE (occurrence: DE)
  Receive Date: 20180820
  Receipt Date: 20180928
  Transmission Date: 20190204
  Serious: Yes (Hospitalization)
  Sender: FDA-Public Use
  Company Number: DE-SA-2018SA195564

PATIENT
  Age: 44 Year
  Sex: Male
  Weight: 102 kg

DRUGS (8)
  1. SAR341402 [Suspect]
     Active Substance: INSULIN ASPART
     Indication: DIABETES MELLITUS
     Dosage: UNK UNK, AC
     Route: 058
     Dates: start: 20171220
  2. PANTOPRAZOL [PANTOPRAZOLE] [Concomitant]
     Indication: GASTROOESOPHAGEAL REFLUX DISEASE
     Dosage: TOTAL DAILY DOSE: 10 MG
     Route: 048
     Dates: start: 2010
  3. VALSARTAN. [Concomitant]
     Active Substance: VALSARTAN
     Indication: HYPERTENSION
     Dosage: TOTAL DAILY DOSE: 80 MG
     Route: 048
     Dates: start: 2001
  4. CARBIMAZOL [Concomitant]
     Active Substance: CARBIMAZOLE
     Indication: HYPERTHYROIDISM
     Dosage: TOTAL DAILY DOSE: 10 MG
     Route: 048
     Dates: start: 1995
  5. PREGABALIN. [Concomitant]
     Active Substance: PREGABALIN
     Dosage: TOTAL DAILY DOSE: 25 MG
     Route: 048
     Dates: start: 2004
  6. LANTUS [Suspect]
     Active Substance: INSULIN GLARGINE
     Indication: DIABETES MELLITUS
     Dosage: UNK UNK, QD
     Route: 058
     Dates: start: 20171220
  7. AMLODIPIN [AMLODIPINE MALEATE] [Concomitant]
     Indication: HYPERTENSION
     Dosage: TOTAL DAILY DOSE 5 MG
     Route: 048
     Dates: start: 2003
  8. SIMVASTATIN. [Concomitant]
     Active Substance: SIMVASTATIN
     Indication: HYPERCHOLESTEROLAEMIA
     Dosage: TOTAL DAILY DOSE: 20 MG
     Route: 048
     Dates: start: 2001

REACTIONS (3)
  - Hypoglycaemic seizure [Recovered/Resolved]
  - Hypoglycaemic unconsciousness [Recovered/Resolved]
  - Accidental overdose [Recovered/Resolved]

NARRATIVE: CASE EVENT DATE: 20180715
